FAERS Safety Report 8975664 (Version 2)
Quarter: 2013Q1

REPORT INFORMATION
  Report Type: Spontaneous
  Country: SE (occurrence: SE)
  Receive Date: 20121219
  Receipt Date: 20130326
  Transmission Date: 20140127
  Serious: Yes (Other)
  Sender: FDA-Public Use
  Company Number: SE-GILEAD-2012-0065326

PATIENT
  Sex: Female

DRUGS (2)
  1. ATRIPLA [Suspect]
     Indication: HIV INFECTION
     Dosage: UNK
     Dates: start: 201009
  2. EVIPLERA [Suspect]
     Indication: HIV INFECTION
     Dosage: UNK

REACTIONS (7)
  - Stress fracture [Unknown]
  - Bone marrow oedema [Not Recovered/Not Resolved]
  - Pain in extremity [Not Recovered/Not Resolved]
  - Local swelling [Not Recovered/Not Resolved]
  - Irritability [Unknown]
  - Anger [Unknown]
  - Sleep disorder [Unknown]
